FAERS Safety Report 5958497-1 (Version None)
Quarter: 2008Q4

REPORT INFORMATION
  Report Type: 
  Country: None (occurrence: None)
  Receive Date: 20081119
  Receipt Date: 20081107
  Transmission Date: 20090506
  Serious: Yes (Other)
  Sender: FDA-Public Use
  Company Number: PHHY2008DE28060

PATIENT
  Age: 42 Year
  Sex: Female

DRUGS (1)
  1. LAMISIL [Suspect]
     Indication: ONYCHOMYCOSIS
     Dosage: UNK
     Route: 048
     Dates: start: 20081101

REACTIONS (5)
  - LOCAL SWELLING [None]
  - MYALGIA [None]
  - PARAESTHESIA [None]
  - SALIVARY HYPERSECRETION [None]
  - SWOLLEN TONGUE [None]
